FAERS Safety Report 5086037-0 (Version None)
Quarter: 2006Q3

REPORT INFORMATION
  Report Type: 
  Country: None (occurrence: None)
  Receive Date: 20060817
  Receipt Date: 20060804
  Transmission Date: 20061208
  Serious: Yes (Other)
  Sender: FDA-Public Use
  Company Number: SPV1-2006-00363

PATIENT
  Sex: 0

DRUGS (1)
  1. CARBAMAZEPINE [Suspect]

REACTIONS (4)
  - EOSINOPHILIA [None]
  - PNEUMONITIS [None]
  - PYREXIA [None]
  - TOXIC SKIN ERUPTION [None]
